FAERS Safety Report 5054942-7 (Version None)
Quarter: 2006Q3

REPORT INFORMATION
  Report Type: 
  Country: None (occurrence: None)
  Receive Date: 20060719
  Receipt Date: 20060630
  Transmission Date: 20061208
  Serious: Yes (Hospitalization)
  Sender: FDA-Public Use
  Company Number: US-AVENTIS-200616922GDDC

PATIENT
  Age: 57 Year
  Sex: Male
  Weight: 78.9 kg

DRUGS (12)
  1. TAXOTERE [Suspect]
     Indication: NON-SMALL CELL LUNG CANCER
     Route: 042
     Dates: start: 20060626, end: 20060626
  2. CISPLATIN [Suspect]
     Indication: NON-SMALL CELL LUNG CANCER
     Route: 042
     Dates: start: 20060626, end: 20060626
  3. DEXAMETHASONE TAB [Concomitant]
     Dosage: DOSE: 8 MG 12 HOURS AND 1 HOUR PRIOR TO CHEMO AND 12 HOURS POST CHEMO
  4. COMPAZINE [Concomitant]
  5. COMPAZINE [Concomitant]
     Dosage: DOSE: 10 MG EVERY 6 HOURS FOR 48 HOURS
  6. AVAPRO [Concomitant]
  7. GLYBURIDE [Concomitant]
  8. COREG [Concomitant]
  9. FOLIC ACID [Concomitant]
  10. PRAVACHOL [Concomitant]
  11. FLOMAX [Concomitant]
  12. ASPIRIN [Concomitant]

REACTIONS (5)
  - DIARRHOEA [None]
  - DIZZINESS [None]
  - HYPERKALAEMIA [None]
  - ORTHOSTATIC HYPOTENSION [None]
  - VOMITING [None]
